FAERS Safety Report 8736779 (Version 2)
Quarter: 2012Q4

REPORT INFORMATION
  Report Type: Spontaneous
  Country: JP (occurrence: None)
  Receive Date: 20120803
  Receipt Date: 20120827
  Transmission Date: 20130627
  Serious: Yes (Death)
  Sender: FDA-Public Use
  Company Number: JP-2012-15929

PATIENT
  Age: 81 Year
  Sex: Male
  Weight: 61 kg

DRUGS (11)
  1. SAMSCA [Suspect]
     Indication: FLUID RETENTION
     Dosage: 7.5 MG MILLIGRAM(S), QAM, ORAL
     Route: 048
     Dates: start: 20120620, end: 20120621
  2. DEPAKENE-R (VALPROATE SODIUM) TABLET [Concomitant]
  3. MAGMITT (MAGNESIUM OXIDE) TABLET [Concomitant]
  4. HANP (CARPERITIDE) INJECTION [Concomitant]
  5. ASPIRIN [Concomitant]
  6. PLAVIX [Concomitant]
  7. CRESTOR [Concomitant]
  8. COVERSYL (PERINDOPRIL ERBUMINE) TABLET [Concomitant]
  9. CARVEDILOL [Concomitant]
  10. LASIX [Concomitant]
  11. ALDACTONE [Concomitant]

REACTIONS (8)
  - Oxygen saturation decreased [None]
  - Hypotension [None]
  - Respiratory depression [None]
  - Depressed level of consciousness [None]
  - Cardiac arrest [None]
  - Low cardiac output syndrome [None]
  - Decreased ventricular preload [None]
  - Cardiac failure [None]
